FAERS Safety Report 18127270 (Version 1)
Quarter: 2020Q3

REPORT INFORMATION
  Report Type: Spontaneous
  Country: US (occurrence: US)
  Receive Date: 20200810
  Receipt Date: 20200810
  Transmission Date: 20201103
  Serious: No
  Sender: FDA-Public Use
  Company Number: US-009507513-2008USA000691

PATIENT
  Sex: Female

DRUGS (1)
  1. GANIRELIX ACETATE INJECTION [Suspect]
     Active Substance: GANIRELIX ACETATE
     Indication: INFERTILITY FEMALE
     Dosage: STRENGTH: 250MCG/0.5 M, 250 MICROGRAM, PRN
     Route: 058
     Dates: start: 20190413

REACTIONS (2)
  - Injection site pruritus [Unknown]
  - Injection site rash [Unknown]
